FAERS Safety Report 6447891-0 (Version None)
Quarter: 2009Q4

REPORT INFORMATION
  Report Type: 
  Country: None (occurrence: None)
  Receive Date: 20091120
  Receipt Date: 20091112
  Transmission Date: 20100525
  Serious: Yes (Hospitalization)
  Sender: FDA-Public Use
  Company Number: US-JNJFOC-20091104541

PATIENT
  Sex: Female
  Weight: 74.84 kg

DRUGS (3)
  1. DURAGESIC-100 [Suspect]
     Route: 062
  2. DURAGESIC-100 [Suspect]
     Indication: BACK PAIN
     Route: 062
  3. PREDNISONE [Concomitant]
     Indication: ARTHRITIS
     Route: 048

REACTIONS (3)
  - ARTHRALGIA [None]
  - DIABETES MELLITUS [None]
  - OESOPHAGITIS [None]
